FAERS Safety Report 9001585 (Version 1)
Quarter: 2013Q1

REPORT INFORMATION
  Report Type: Spontaneous
  Country: US (occurrence: US)
  Receive Date: 20130107
  Receipt Date: 20130107
  Transmission Date: 20140127
  Serious: Yes (Other)
  Sender: FDA-Public Use
  Company Number: US-BAYER-2013-001411

PATIENT
  Age: 21 Year
  Sex: Female
  Weight: 59 kg

DRUGS (1)
  1. MIDOL [Suspect]
     Dosage: 10 DF, UNK
     Route: 048
     Dates: start: 20130101

REACTIONS (1)
  - Overdose [None]
